FAERS Safety Report 7732852-1 (Version None)
Quarter: 2011Q3

REPORT INFORMATION
  Report Type: 
  Country: None (occurrence: None)
  Receive Date: 20110902
  Receipt Date: 20110902
  Transmission Date: 20111222
  Serious: No
  Sender: FDA-Public Use
  Company Number: None

PATIENT
  Age: 46 Year
  Sex: Male
  Weight: 87 kg

DRUGS (2)
  1. KETAMINE HCL [Suspect]
     Indication: CHEST TUBE INSERTION
     Dosage: 1 MG/MIN CONTINUOUS INTRAVENOUS INFUSION (IV)
     Route: 042
     Dates: start: 20110726
  2. KETAMINE HCL [Suspect]
     Indication: PNEUMOTHORAX
     Dosage: 1 MG/MIN CONTINUOUS INTRAVENOUS INFUSION (IV)
     Route: 042
     Dates: start: 20110726

REACTIONS (2)
  - DRUG EFFECT DECREASED [None]
  - AGITATION [None]
